FAERS Safety Report 7554141-0 (Version None)
Quarter: 2011Q2

REPORT INFORMATION
  Report Type: 
  Country: None (occurrence: None)
  Receive Date: 20110617
  Receipt Date: 20110615
  Transmission Date: 20111010
  Serious: No
  Sender: FDA-Public Use
  Company Number: US-TEVA-286570USA

PATIENT

DRUGS (1)
  1. COPAXONE [Suspect]
     Route: 058
     Dates: start: 20100101

REACTIONS (1)
  - INJURY ASSOCIATED WITH DEVICE [None]
